FAERS Safety Report 8097283-6 (Version None)
Quarter: 2012Q1

REPORT INFORMATION
  Report Type: 
  Country: None (occurrence: None)
  Receive Date: 20120128
  Receipt Date: 20110629
  Transmission Date: 20120608
  Serious: No
  Sender: FDA-Public Use
  Company Number: US-ABBOTT-11P-163-0835199-00

PATIENT
  Sex: Female

DRUGS (3)
  1. HUMIRA [Suspect]
     Indication: PSORIATIC ARTHROPATHY
     Dates: start: 20100901
  2. METHOTREXATE [Concomitant]
     Indication: PRODUCT USED FOR UNKNOWN INDICATION
     Dosage: UNREPORTED DOSE; 6 TABLETS EVERY WEEK
  3. NAPROXEN [Concomitant]
     Indication: PAIN
     Dosage: UNREPORTED DOSE; AS NEEDED

REACTIONS (1)
  - INJECTION SITE PAIN [None]
